FAERS Safety Report 10670042 (Version 1)
Quarter: 2014Q4

REPORT INFORMATION
  Report Type: Spontaneous
  Country: BR (occurrence: BR)
  Receive Date: 20141223
  Receipt Date: 20141223
  Transmission Date: 20150529
  Serious: Yes (Death, Hospitalization)
  Sender: FDA-Public Use
  Company Number: BR-ROCHE-1511423

PATIENT
  Age: 74 Year
  Sex: Female
  Weight: 51 kg

DRUGS (11)
  1. MAREVAN [Concomitant]
     Active Substance: WARFARIN SODIUM
  2. ANCORON [Concomitant]
     Active Substance: AMIODARONE HYDROCHLORIDE
  3. LASIX [Concomitant]
     Active Substance: FUROSEMIDE
  4. PREDNISONE. [Concomitant]
     Active Substance: PREDNISONE
  5. ACTONEL [Concomitant]
     Active Substance: RISEDRONATE SODIUM
  6. ARTROLIVE [Concomitant]
     Active Substance: CHONDROITIN SULFATE (BOVINE)\GLUCOSAMINE SULFATE
  7. MABTHERA [Suspect]
     Active Substance: RITUXIMAB
     Indication: LYMPHOMA
     Dosage: SIXTH CYCLE OF TREATMENT: 14/OCT/2014.
     Route: 042
     Dates: start: 20140604
  8. FAULDOXO [Suspect]
     Active Substance: DOXORUBICIN HYDROCHLORIDE
     Indication: LYMPHOMA
     Route: 042
     Dates: start: 20140604
  9. GENUXAL [Suspect]
     Active Substance: CYCLOPHOSPHAMIDE
     Indication: LYMPHOMA
     Route: 042
     Dates: start: 20140604
  10. FAULDVINCRI [Suspect]
     Active Substance: VINCRISTINE SULFATE
     Indication: LYMPHOMA
     Route: 042
     Dates: start: 20140604
  11. ALOPURINOL [Concomitant]
     Active Substance: ALLOPURINOL

REACTIONS (3)
  - Shock [Fatal]
  - Pneumonia [Unknown]
  - Septic shock [Not Recovered/Not Resolved]

NARRATIVE: CASE EVENT DATE: 20141110
